FAERS Safety Report 22905073 (Version 2)
Quarter: 2023Q4

REPORT INFORMATION
  Report Type: Report from Study
  Country: FR (occurrence: FR)
  Receive Date: 20230905
  Receipt Date: 20231115
  Transmission Date: 20240109
  Serious: Yes (Hospitalization)
  Sender: FDA-Public Use
  Company Number: FR-AMGEN-FRACT2023154898

PATIENT
  Age: 49 Year
  Sex: Male
  Weight: 84 kg

DRUGS (5)
  1. CARFILZOMIB [Suspect]
     Active Substance: CARFILZOMIB
     Indication: Plasma cell myeloma
     Dosage: 41 MILLIGRAM, PER CHEMO REGIM
     Route: 042
     Dates: start: 20230119, end: 20230713
  2. ISATUXIMAB [Suspect]
     Active Substance: ISATUXIMAB
     Indication: Plasma cell myeloma
     Dosage: 880 MILLIGRAM, PER CHEMO REGIM
     Route: 042
     Dates: start: 20230119, end: 20230713
  3. LENALIDOMIDE [Suspect]
     Active Substance: LENALIDOMIDE
     Indication: Plasma cell myeloma
     Dosage: 25 MILLIGRAM, PER CHEMO REGIM
     Route: 048
     Dates: start: 20230119, end: 20230729
  4. DEXAMETHASONE [Suspect]
     Active Substance: DEXAMETHASONE
     Indication: Plasma cell myeloma
     Dosage: 40 MILLIGRAM, PER CHEMO REGIM
     Route: 048
     Dates: start: 20230119, end: 20230720
  5. MELPHALAN [Concomitant]
     Active Substance: MELPHALAN
     Dosage: UNK
     Dates: start: 20230316

REACTIONS (1)
  - COVID-19 [Recovered/Resolved]

NARRATIVE: CASE EVENT DATE: 20230829
